FAERS Safety Report 18097473 (Version 2)
Quarter: 2020Q4

REPORT INFORMATION
  Report Type: Spontaneous
  Country: JP (occurrence: JP)
  Receive Date: 20200731
  Receipt Date: 20201111
  Transmission Date: 20210113
  Serious: Yes (Death, Life-Threatening, Other)
  Sender: FDA-Public Use
  Company Number: JP-AMGEN-JPNSP2020122968

PATIENT
  Age: 79 Year
  Sex: Male
  Weight: 75.1 kg

DRUGS (3)
  1. DAIKENCHUTO [Concomitant]
     Active Substance: HERBALS
     Indication: PROPHYLAXIS
     Dosage: 2.5 GRAM, TID
     Route: 048
     Dates: start: 20171211, end: 20200720
  2. MAGNESIUM OXIDE. [Concomitant]
     Active Substance: MAGNESIUM OXIDE
     Indication: PROPHYLAXIS
     Dosage: 330 MILLIGRAM, TID
     Route: 048
     Dates: start: 20170407, end: 20200720
  3. VECTIBIX [Suspect]
     Active Substance: PANITUMUMAB
     Indication: COLON CANCER
     Dosage: 450 MILLIGRAM, QD
     Route: 041
     Dates: start: 20200720, end: 20200720

REACTIONS (3)
  - Multiple organ dysfunction syndrome [Fatal]
  - Cardiac arrest [Recovered/Resolved with Sequelae]
  - Infusion related reaction [Unknown]

NARRATIVE: CASE EVENT DATE: 20200720
